FAERS Safety Report 4731042-4 (Version None)
Quarter: 2005Q3

REPORT INFORMATION
  Report Type: 
  Country: None (occurrence: None)
  Receive Date: 20050719
  Receipt Date: 20050104
  Transmission Date: 20060218
  Serious: Yes (Hospitalization)
  Sender: FDA-Public Use
  Company Number: 2005BI000508

PATIENT
  Age: 44 Year
  Sex: Female
  Weight: 105.2345 kg

DRUGS (5)
  1. AVONEX [Suspect]
     Indication: MULTIPLE SCLEROSIS
     Dosage: 30 UG; QW; IM
     Route: 030
     Dates: start: 20040401, end: 20040701
  2. AVONEX [Suspect]
     Indication: MULTIPLE SCLEROSIS
     Dosage: 30 UG; QW; IM
     Route: 030
     Dates: start: 20040701
  3. VITAMIN C (NOS) [Concomitant]
  4. MULTIVITAMIN (NOS) [Concomitant]
  5. CALCIUM + D (NOS) [Concomitant]

REACTIONS (8)
  - ASTHENOPIA [None]
  - DEPRESSION [None]
  - HEADACHE [None]
  - MULTIPLE SCLEROSIS RELAPSE [None]
  - MUSCLE SPASMS [None]
  - PHOTOPHOBIA [None]
  - SLEEP DISORDER [None]
  - URINARY INCONTINENCE [None]
